FAERS Safety Report 6541647-6 (Version None)
Quarter: 2010Q1

REPORT INFORMATION
  Report Type: 
  Country: None (occurrence: None)
  Receive Date: 20100119
  Receipt Date: 20100112
  Transmission Date: 20100710
  Serious: No
  Sender: FDA-Public Use
  Company Number: US-B.I. PHARMACEUTICALS,INC./RIDGEFIELD-2010-BP-00405BP

PATIENT
  Sex: Male

DRUGS (2)
  1. FLOMAX [Suspect]
     Indication: PROSTATOMEGALY
     Dosage: 0.4 MG
     Route: 048
     Dates: start: 20091201
  2. VICODIN [Concomitant]
     Indication: PAIN
     Dates: start: 20090101, end: 20090101

REACTIONS (5)
  - DIZZINESS [None]
  - EJACULATION FAILURE [None]
  - LOSS OF LIBIDO [None]
  - TESTICULAR PAIN [None]
  - TESTICULAR SWELLING [None]
